FAERS Safety Report 6787839-2 (Version None)
Quarter: 2010Q2

REPORT INFORMATION
  Report Type: 
  Country: None (occurrence: None)
  Receive Date: 20100623
  Receipt Date: 20080703
  Transmission Date: 20101027
  Serious: Yes (Other)
  Sender: FDA-Public Use
  Company Number: US-PFIZER INC-2007055461

PATIENT
  Sex: Female
  Weight: 64.4 kg

DRUGS (5)
  1. SUTENT [Suspect]
     Indication: RENAL CELL CARCINOMA
     Dates: start: 20070601, end: 20071201
  2. HYDROCODONE [Concomitant]
  3. LOMOTIL [Concomitant]
  4. AMBIEN [Concomitant]
  5. TOPROL-XL [Concomitant]

REACTIONS (6)
  - ASTHENIA [None]
  - BONE PAIN [None]
  - DIARRHOEA [None]
  - FATIGUE [None]
  - HYPERTENSION [None]
  - HYPOKINESIA [None]
